FAERS Safety Report 14591017 (Version 2)
Quarter: 2018Q1

REPORT INFORMATION
  Report Type: Report from Study
  Country: BR (occurrence: BR)
  Receive Date: 20180302
  Receipt Date: 20180308
  Transmission Date: 20180509
  Serious: Yes (Death, Life-Threatening, Hospitalization, Other)
  Sender: FDA-Public Use
  Company Number: BR-PFIZER INC-2018084591

PATIENT
  Age: 16 Year
  Sex: Female
  Weight: 52 kg

DRUGS (3)
  1. BESPONSA [Suspect]
     Active Substance: INOTUZUMAB OZOGAMICIN
     Indication: ACUTE LYMPHOCYTIC LEUKAEMIA
     Dosage: 4 MG
     Route: 042
  2. CYTARABINE. [Concomitant]
     Active Substance: CYTARABINE
     Dosage: 500 MG/M2; 4 DOSES
     Dates: start: 20180114, end: 20180115
  3. METHOTREXATE. [Concomitant]
     Active Substance: METHOTREXATE
     Dosage: 250 MG/M2
     Dates: start: 20180113, end: 20180113

REACTIONS (2)
  - Venoocclusive liver disease [Recovering/Resolving]
  - Death [Fatal]

NARRATIVE: CASE EVENT DATE: 20180126
